FAERS Safety Report 9677966 (Version 1)
Quarter: 2013Q4

REPORT INFORMATION
  Report Type: Spontaneous
  Country: IT (occurrence: IT)
  Receive Date: 20131108
  Receipt Date: 20131108
  Transmission Date: 20140711
  Serious: Yes (Hospitalization)
  Sender: FDA-Public Use
  Company Number: IT-BAYER-2013-136060

PATIENT
  Age: 86 Year
  Sex: Female

DRUGS (1)
  1. ASPIRINETTA COMPRESSE [Suspect]
     Dosage: DAILY DOSE 100 MG
     Route: 048
     Dates: start: 20000101, end: 20130813

REACTIONS (4)
  - Gastrointestinal haemorrhage [Recovering/Resolving]
  - Haematemesis [Recovering/Resolving]
  - Melaena [Recovering/Resolving]
  - Syncope [Recovering/Resolving]
